FAERS Safety Report 6059521-0 (Version None)
Quarter: 2009Q1

REPORT INFORMATION
  Report Type: 
  Country: None (occurrence: None)
  Receive Date: 20090130
  Receipt Date: 20090123
  Transmission Date: 20090719
  Serious: No
  Sender: FDA-Public Use
  Company Number: US-ELI_LILLY_AND_COMPANY-US200901002453

PATIENT
  Sex: Male

DRUGS (5)
  1. STRATTERA [Suspect]
     Indication: ATTENTION DEFICIT/HYPERACTIVITY DISORDER
     Dosage: 40 MG, DAILY (1/D)
     Route: 065
     Dates: start: 20080114
  2. STRATTERA [Suspect]
     Dosage: 50 MG, DAILY (1/D)
     Route: 065
     Dates: start: 20090113, end: 20090115
  3. STRATTERA [Suspect]
     Dosage: 40 MG, DAILY (1/D)
     Route: 065
     Dates: start: 20090116
  4. RISPERIDONE [Concomitant]
     Indication: AFFECTIVE DISORDER
     Dosage: UNK, UNKNOWN
     Route: 065
     Dates: end: 20090107
  5. TEGRETOL [Concomitant]
     Indication: AFFECTIVE DISORDER
     Dosage: UNK, UNKNOWN
     Route: 065
     Dates: end: 20090107

REACTIONS (2)
  - MYDRIASIS [None]
  - PARAESTHESIA [None]
